FAERS Safety Report 13512327 (Version 1)
Quarter: 2017Q2

REPORT INFORMATION
  Report Type: Report from Study
  Country: None (occurrence: BR)
  Receive Date: 20170504
  Receipt Date: 20170504
  Transmission Date: 20170830
  Serious: Yes (Other)
  Sender: FDA-Public Use
  Company Number: BR-ABBVIE-17K-020-1959990-00

PATIENT
  Age: 46 Year
  Sex: Male
  Weight: 57.8 kg

DRUGS (4)
  1. AZATHIOPRINE. [Concomitant]
     Active Substance: AZATHIOPRINE
     Indication: ANTIINFLAMMATORY THERAPY
     Route: 048
     Dates: start: 201607, end: 20170218
  2. HUMIRA [Suspect]
     Active Substance: ADALIMUMAB
     Dosage: WEEK 1
     Route: 058
     Dates: start: 2013, end: 2013
  3. HUMIRA [Suspect]
     Active Substance: ADALIMUMAB
     Indication: CROHN^S DISEASE
     Dosage: WEEK 0
     Route: 058
     Dates: start: 20130724, end: 20130724
  4. HUMIRA [Suspect]
     Active Substance: ADALIMUMAB
     Route: 058
     Dates: start: 2013, end: 20170118

REACTIONS (6)
  - Intestinal stenosis [Not Recovered/Not Resolved]
  - Intestinal perforation [Recovered/Resolved]
  - Fungal infection [Recovered/Resolved]
  - Nausea [Unknown]
  - Anaemia [Recovered/Resolved]
  - Crohn^s disease [Recovered/Resolved]

NARRATIVE: CASE EVENT DATE: 20170322
